FAERS Safety Report 5225682-6 (Version None)
Quarter: 2007Q1

REPORT INFORMATION
  Report Type: 
  Country: None (occurrence: None)
  Receive Date: 20061201
  Receipt Date: 20060817
  Transmission Date: 20070707
  Serious: No
  Sender: FDA-Public Use
  Company Number: US200607002434

PATIENT
  Age: 19 Year
  Sex: Male
  Weight: 86.2 kg

DRUGS (1)
  1. CYMBALTA [Suspect]
     Indication: DEPRESSION
     Dosage: 60 MG, ORAL
     Route: 048
     Dates: start: 20060501, end: 20060712

REACTIONS (2)
  - GALACTORRHOEA [None]
  - HYPERTENSION [None]
